FAERS Safety Report 4992418-3 (Version None)
Quarter: 2006Q2

REPORT INFORMATION
  Report Type: 
  Country: None (occurrence: None)
  Receive Date: 20060504
  Receipt Date: 20060419
  Transmission Date: 20061013
  Serious: Yes (Hospitalization)
  Sender: FDA-Public Use
  Company Number: DEWYE566320APR06

PATIENT
  Sex: Male

DRUGS (2)
  1. ENBREL [Suspect]
     Indication: POLYMYALGIA RHEUMATICA
     Dosage: UNKNOWN
     Route: 065
     Dates: start: 20041201, end: 20050601
  2. HUMIRA [Suspect]
     Indication: MUSCULOSKELETAL PAIN
     Dosage: UNKNOWN
     Route: 065
     Dates: start: 20050701, end: 20051001

REACTIONS (2)
  - HYPOAESTHESIA [None]
  - MUSCULAR WEAKNESS [None]
